FAERS Safety Report 23747984 (Version 1)
Quarter: 2024Q2

REPORT INFORMATION
  Report Type: Spontaneous
  Country: US (occurrence: None)
  Receive Date: 20240415
  Receipt Date: 20240415
  Transmission Date: 20240716
  Serious: No
  Sender: FDA-Public Use
  Company Number: None

PATIENT
  Age: 77 Year
  Sex: 0

DRUGS (2)
  1. DOXYCYCLINE HYCLATE [Suspect]
     Active Substance: DOXYCYCLINE HYCLATE
     Dosage: FREQUENCY : DAILY;?
     Route: 048
     Dates: start: 20240205, end: 20240210
  2. DILTIAZEM [Concomitant]
     Active Substance: DILTIAZEM
     Dates: start: 20040101, end: 20240415

REACTIONS (5)
  - Vertigo [None]
  - Tinnitus [None]
  - Confusional state [None]
  - Leukopenia [None]
  - Cerebrovascular accident [None]

NARRATIVE: CASE EVENT DATE: 20240402
